FAERS Safety Report 22652951 (Version 1)
Quarter: 2023Q2

REPORT INFORMATION
  Report Type: Spontaneous
  Country: US (occurrence: US)
  Receive Date: 20230629
  Receipt Date: 20230629
  Transmission Date: 20230722
  Serious: No
  Sender: FDA-Public Use
  Company Number: US-ABBVIE-5307692

PATIENT
  Sex: Female

DRUGS (2)
  1. SYNTHROID [Suspect]
     Active Substance: LEVOTHYROXINE SODIUM
     Indication: Product used for unknown indication
     Dosage: FORM STRENGTH: 90 MICROGRAM
     Route: 048
  2. SYNTHROID [Suspect]
     Active Substance: LEVOTHYROXINE SODIUM
     Indication: Product used for unknown indication
     Dosage: FORM STRENGTH: 112 MICROGRAM
     Route: 048
     Dates: start: 2023

REACTIONS (4)
  - Cough [Unknown]
  - Illness [Unknown]
  - Laboratory test abnormal [Unknown]
  - Product tampering [Not Recovered/Not Resolved]

NARRATIVE: CASE EVENT DATE: 20230101
